FAERS Safety Report 4429878-2 (Version None)
Quarter: 2004Q3

REPORT INFORMATION
  Report Type: 
  Country: None (occurrence: None)
  Receive Date: 20040817
  Receipt Date: 20040805
  Transmission Date: 20050211
  Serious: Yes (Disabling, Other)
  Sender: FDA-Public Use
  Company Number: 2003120434

PATIENT
  Age: 73 Month
  Sex: Male
  Weight: 71.2147 kg

DRUGS (24)
  1. LIPITOR [Suspect]
     Indication: HYPERCHOLESTEROLAEMIA
     Dosage: 10 MG (1 IN 1 D), ORAL
     Route: 048
     Dates: start: 19981201, end: 20020801
  2. PRAVASTATIN [Suspect]
     Indication: HYPERCHOLESTEROLAEMIA
     Dosage: 10 MG (1 IN 1 D), ORAL
     Route: 048
     Dates: start: 20020801, end: 20020101
  3. PAROXETINE HCL [Suspect]
     Indication: DEPRESSION
     Dosage: 10 MG (1 IN 1 D)
     Dates: start: 20021001, end: 20020101
  4. TRAZODONE HCL [Concomitant]
  5. MAGNESIUM (MAGNESIUM) [Concomitant]
  6. SELENIUM (SELENIUM) [Concomitant]
  7. HYZAAR [Concomitant]
  8. CARVEDILOL [Concomitant]
  9. HYDROCHLOROTHIAZIDE [Concomitant]
  10. ASPIRIN [Concomitant]
  11. CARISOPRODOL [Concomitant]
  12. VICODIN [Concomitant]
  13. CODEINE (CODEINE) [Concomitant]
  14. CANNABIS (CANNABIS) [Concomitant]
  15. GLUCOSAMINE W/CHONDROITIN SULFATES (ASCORBIC ACID, MANGANESE, CHONDROI [Concomitant]
  16. PSEUDOEPHEDRINE HCL [Concomitant]
  17. RANITIDINE HYDROCHLORIDE [Concomitant]
  18. CAFFEINE (CAFFEINE) [Concomitant]
  19. LORAZEPAM [Concomitant]
  20. DIGOXIN [Concomitant]
  21. EFLORNITHINE (EFLORNITHINE) [Concomitant]
  22. LOSARTAN (LOSARTAN) [Concomitant]
  23. SPIRONOLACTONE [Concomitant]
  24. ALL OTHER THERAPEUTIC PRODUCTS (ALL OTHER THERAPEUTIC PRODUCTS) [Concomitant]

REACTIONS (51)
  - ACTIVITIES OF DAILY LIVING IMPAIRED [None]
  - AFFECTIVE DISORDER [None]
  - ANGER [None]
  - ANXIETY [None]
  - ARTHRALGIA [None]
  - ASTHENIA [None]
  - BEDRIDDEN [None]
  - BLOOD CREATINE PHOSPHOKINASE INCREASED [None]
  - CARDIAC FUNCTION TEST ABNORMAL [None]
  - CONTUSION [None]
  - COUGH [None]
  - DEPRESSION [None]
  - DIFFICULTY IN WALKING [None]
  - DISCOMFORT [None]
  - DYSPNOEA [None]
  - DYSSTASIA [None]
  - ELECTROCARDIOGRAM ST SEGMENT ABNORMAL [None]
  - FATIGUE [None]
  - FEELING JITTERY [None]
  - FLIGHT OF IDEAS [None]
  - GAIT DISTURBANCE [None]
  - GASTROOESOPHAGEAL REFLUX DISEASE [None]
  - HALLUCINATION [None]
  - HEADACHE [None]
  - HEPATOMEGALY [None]
  - HOARSENESS [None]
  - HYPOAESTHESIA [None]
  - INJURY [None]
  - INSOMNIA [None]
  - LEGAL PROBLEM [None]
  - MALAISE [None]
  - MENTAL DISORDER [None]
  - MUSCLE CRAMP [None]
  - MUSCLE SPASMS [None]
  - MYALGIA [None]
  - MYOPATHY [None]
  - NAUSEA [None]
  - ONYCHOMYCOSIS [None]
  - PAIN [None]
  - PAIN IN EXTREMITY [None]
  - PALPITATIONS [None]
  - PARAESTHESIA [None]
  - PSYCHOMOTOR HYPERACTIVITY [None]
  - REFUSAL OF TREATMENT BY PATIENT [None]
  - SINUS BRADYCARDIA [None]
  - SLEEP DISORDER [None]
  - STOMACH DISCOMFORT [None]
  - TENDERNESS [None]
  - VENTRICULAR HYPERTROPHY [None]
  - VOMITING [None]
  - WEIGHT INCREASED [None]
